FAERS Safety Report 13403563 (Version 3)
Quarter: 2017Q3

REPORT INFORMATION
  Report Type: Report from Study
  Country: None (occurrence: US)
  Receive Date: 20170404
  Receipt Date: 20170821
  Transmission Date: 20171127
  Serious: Yes (Hospitalization, Other)
  Sender: FDA-Public Use
  Company Number: US-ABBVIE-17K-163-1929047-00

PATIENT
  Age: 77 Year
  Sex: Female

DRUGS (3)
  1. HUMIRA [Suspect]
     Active Substance: ADALIMUMAB
     Route: 058
     Dates: start: 2017
  2. SULFAMETHOXAZOLE / TRIMETHOPRIM [Suspect]
     Active Substance: SULFAMETHOXAZOLE\TRIMETHOPRIM
     Indication: URINARY TRACT INFECTION
     Route: 065
     Dates: start: 201706, end: 2017
  3. HUMIRA [Suspect]
     Active Substance: ADALIMUMAB
     Indication: CROHN^S DISEASE
     Route: 058
     Dates: end: 2017

REACTIONS (10)
  - Urinary tract infection [Recovered/Resolved]
  - Pruritus [Recovered/Resolved]
  - Arthralgia [Recovered/Resolved]
  - Myalgia [Recovered/Resolved]
  - Vaginal fistula [Recovered/Resolved]
  - Crohn^s disease [Recovered/Resolved]
  - Nasopharyngitis [Recovered/Resolved]
  - Pneumonia [Recovered/Resolved]
  - Insomnia [Recovered/Resolved]
  - Infectious colitis [Recovered/Resolved]

NARRATIVE: CASE EVENT DATE: 20170228
